FAERS Safety Report 6306036-8 (Version None)
Quarter: 2009Q3

REPORT INFORMATION
  Report Type: 
  Country: None (occurrence: None)
  Receive Date: 20090810
  Receipt Date: 20090810
  Transmission Date: 20100115
  Serious: Yes (Hospitalization)
  Sender: FDA-Public Use
  Company Number: None

PATIENT
  Age: 87 Year
  Sex: Female
  Weight: 72 kg

DRUGS (13)
  1. ASPIRIN [Suspect]
     Dosage: 81 MG DAILY PO PRIOR TO ADMISSION
     Route: 048
  2. NAPROXEN [Suspect]
     Indication: ARTHRITIS
     Dosage: 220 MG BID PO PRIOR TO ADMISSION
     Route: 048
  3. BUDESONIDE ORAL INHALER [Concomitant]
  4. ALBUTEROL [Concomitant]
  5. ESCITALOPRAM [Concomitant]
  6. CLONAZEPAM [Concomitant]
  7. EZETIMIBE/SIMVASTATIN [Concomitant]
  8. GABAPENTIN [Concomitant]
  9. LEVOTHYROXINE [Concomitant]
  10. RISEDRONATE SODIUM [Concomitant]
  11. CALCIUM [Concomitant]
  12. VITAMIN D [Concomitant]
  13. HYDROCHLOROTHIAZIDE [Concomitant]

REACTIONS (9)
  - DECREASED APPETITE [None]
  - DYSPNOEA [None]
  - FAECES DISCOLOURED [None]
  - FALL [None]
  - GASTRIC ULCER [None]
  - GASTRITIS [None]
  - GASTROINTESTINAL HAEMORRHAGE [None]
  - HAEMOGLOBIN DECREASED [None]
  - NAUSEA [None]
